FAERS Safety Report 14421309 (Version 1)
Quarter: 2018Q1

REPORT INFORMATION
  Report Type: Report from Study
  Country: BR (occurrence: BR)
  Receive Date: 20180122
  Receipt Date: 20180122
  Transmission Date: 20180509
  Serious: Yes (Other)
  Sender: FDA-Public Use
  Company Number: BR-ELI_LILLY_AND_COMPANY-BR201801006806

PATIENT

DRUGS (4)
  1. CETUXIMAB. [Suspect]
     Active Substance: CETUXIMAB
     Indication: COLORECTAL CANCER
     Dosage: 950 MG, 2/M
     Route: 042
     Dates: start: 20171213
  2. CETUXIMAB. [Suspect]
     Active Substance: CETUXIMAB
     Dosage: 200 MG, 2/M
     Route: 042
     Dates: start: 20171227
  3. CETUXIMAB. [Suspect]
     Active Substance: CETUXIMAB
     Dosage: 200 MG, 2/M
     Route: 042
     Dates: start: 20171227
  4. CETUXIMAB. [Suspect]
     Active Substance: CETUXIMAB
     Dosage: 550 MG, 2/M
     Route: 042
     Dates: start: 20171227

REACTIONS (3)
  - Off label use [Unknown]
  - Pruritus [Recovering/Resolving]
  - Macule [Recovering/Resolving]

NARRATIVE: CASE EVENT DATE: 20171227
